FAERS Safety Report 16762116 (Version 1)
Quarter: 2019Q3

REPORT INFORMATION
  Report Type: Spontaneous
  Country: GB (occurrence: GB)
  Receive Date: 20190830
  Receipt Date: 20190830
  Transmission Date: 20191005
  Serious: Yes (Life-Threatening, Hospitalization, Disabling, Other)
  Sender: FDA-Public Use
  Company Number: PHHY2019GB199340

PATIENT
  Age: 27 Year
  Sex: Female
  Weight: 63.5 kg

DRUGS (29)
  1. DIAZEPAM. [Interacting]
     Active Substance: DIAZEPAM
     Indication: SEROTONIN SYNDROME
     Dosage: 8 MG, Q24H
     Route: 065
     Dates: start: 20110725
  2. SEROXAT [Interacting]
     Active Substance: PAROXETINE HYDROCHLORIDE
     Indication: DEPRESSION
     Dosage: 60 MG, QD
     Route: 048
     Dates: start: 19990801, end: 201105
  3. PROCYCLIDINE [Interacting]
     Active Substance: PROCYCLIDINE
     Indication: EXTRAPYRAMIDAL DISORDER
     Dosage: UNK
     Route: 065
  4. CODEINE PHOSPHATE [Interacting]
     Active Substance: CODEINE PHOSPHATE
     Indication: ANALGESIC THERAPY
     Dosage: 1 OT, Q24H
     Route: 048
     Dates: start: 20110615, end: 20110723
  5. CODEINE PHOSPHATE [Interacting]
     Active Substance: CODEINE PHOSPHATE
     Dosage: UNK
     Route: 048
  6. QUETIAPINE. [Suspect]
     Active Substance: QUETIAPINE
     Indication: PSYCHOTIC DISORDER
     Dosage: UNK
     Route: 065
  7. TRAMADOL. [Interacting]
     Active Substance: TRAMADOL
     Indication: BACK PAIN
     Dosage: UNK
     Route: 048
     Dates: start: 20081201, end: 20101210
  8. LORAZEPAM. [Interacting]
     Active Substance: LORAZEPAM
     Indication: SEDATION
     Dosage: 1 MG, UNK
     Route: 048
     Dates: start: 20110224, end: 20110410
  9. OMEPRAZOLE. [Interacting]
     Active Substance: OMEPRAZOLE
     Indication: DYSPEPSIA
     Dosage: 20 MG, Q24H
     Route: 065
     Dates: start: 20110525
  10. DIAZEPAM. [Interacting]
     Active Substance: DIAZEPAM
     Indication: MUSCLE SPASMS
     Dosage: 20 MG, QD
     Route: 065
     Dates: start: 20110725
  11. MIRTAZAPINE. [Interacting]
     Active Substance: MIRTAZAPINE
     Indication: DEPRESSION
     Dosage: 30 MG, Q24H
     Route: 048
     Dates: start: 20100923, end: 20101108
  12. TRAMADOL. [Interacting]
     Active Substance: TRAMADOL
     Indication: NECK PAIN
     Dosage: 4 OT, QD
     Route: 048
     Dates: start: 20081201, end: 20101210
  13. PAROXETINE HYDROCHLORIDE. [Interacting]
     Active Substance: PAROXETINE HYDROCHLORIDE
     Dosage: UNK
     Route: 048
     Dates: start: 19990801, end: 20110706
  14. DOMPERIDONE [Interacting]
     Active Substance: DOMPERIDONE
     Indication: PRODUCT USED FOR UNKNOWN INDICATION
     Dosage: UNK
     Route: 065
  15. CODEINE PHOSPHATE [Interacting]
     Active Substance: CODEINE PHOSPHATE
     Indication: SEROTONIN SYNDROME
     Dosage: UNK
     Route: 048
  16. PAROXETINE HYDROCHLORIDE. [Interacting]
     Active Substance: PAROXETINE HYDROCHLORIDE
     Indication: POST-TRAUMATIC STRESS DISORDER
     Dosage: UNK
     Route: 048
  17. LORAZEPAM. [Interacting]
     Active Substance: LORAZEPAM
     Dosage: 4 MG, QD
     Route: 048
     Dates: start: 20110523, end: 20110627
  18. AMITRIPTYLINE [Interacting]
     Active Substance: AMITRIPTYLINE
     Indication: MUSCLE SPASMS
     Dosage: UNK
     Route: 065
  19. PROCYCLIDINE [Interacting]
     Active Substance: PROCYCLIDINE
     Indication: OCULOGYRIC CRISIS
     Dosage: 5 MG, Q24H
     Route: 048
     Dates: start: 1995, end: 1996
  20. PROCYCLIDINE [Interacting]
     Active Substance: PROCYCLIDINE
     Dosage: 15 MG, QD
     Route: 048
     Dates: start: 20110503, end: 20110510
  21. QUETIAPINE. [Interacting]
     Active Substance: QUETIAPINE
     Dosage: 300 MG, UNK
     Route: 048
     Dates: start: 20110224, end: 20110506
  22. DIAZEPAM. [Interacting]
     Active Substance: DIAZEPAM
     Dosage: UNK
     Route: 065
  23. SEROXAT [Interacting]
     Active Substance: PAROXETINE HYDROCHLORIDE
     Dosage: 40 MG, QD
     Route: 048
     Dates: start: 201105, end: 20110706
  24. AMITRIPTYLINE [Interacting]
     Active Substance: AMITRIPTYLINE
     Indication: SEROTONIN SYNDROME
     Dosage: 25 MG, QD
     Route: 065
     Dates: start: 20110810
  25. PROCYCLIDINE [Interacting]
     Active Substance: PROCYCLIDINE
     Dosage: UNK
     Route: 048
     Dates: start: 20110503, end: 20110510
  26. TRAMADOL. [Interacting]
     Active Substance: TRAMADOL
     Indication: ANALGESIC THERAPY
     Dosage: 4 OT, QD
     Route: 048
     Dates: start: 20080722
  27. CLONAZEPAM. [Interacting]
     Active Substance: CLONAZEPAM
     Indication: SEDATION
     Dosage: UNK
     Route: 048
     Dates: start: 20110224, end: 20110410
  28. AMITRIPTYLINE [Interacting]
     Active Substance: AMITRIPTYLINE
     Indication: NEURALGIA
     Dosage: UNK
     Route: 065
  29. PAROXETINE HYDROCHLORIDE. [Interacting]
     Active Substance: PAROXETINE HYDROCHLORIDE
     Indication: DEPRESSION
     Dosage: 40 MG, UNK
     Route: 048
     Dates: start: 19990801, end: 20110706

REACTIONS (31)
  - Muscle disorder [Unknown]
  - Hypoaesthesia oral [Unknown]
  - Contusion [Unknown]
  - Fatigue [Unknown]
  - Dystonia [Unknown]
  - Muscle spasms [Not Recovered/Not Resolved]
  - Arthralgia [Unknown]
  - Paralysis [Unknown]
  - Serotonin syndrome [Not Recovered/Not Resolved]
  - Skin discolouration [Not Recovered/Not Resolved]
  - Feeling of body temperature change [Unknown]
  - Nightmare [Unknown]
  - Seizure [Unknown]
  - Speech disorder [Unknown]
  - Exposure during pregnancy [Unknown]
  - Muscle rigidity [Unknown]
  - Drug withdrawal syndrome [Unknown]
  - Neuroleptic malignant syndrome [Unknown]
  - Mydriasis [Unknown]
  - Pallor [Unknown]
  - Swollen tongue [Unknown]
  - Paraesthesia [Unknown]
  - Suicidal ideation [Not Recovered/Not Resolved]
  - Toxicity to various agents [Unknown]
  - Disorientation [Not Recovered/Not Resolved]
  - Musculoskeletal stiffness [Unknown]
  - Drug interaction [Unknown]
  - Malaise [Unknown]
  - Premature labour [Unknown]
  - Aphasia [Not Recovered/Not Resolved]
  - Muscle spasms [Unknown]

NARRATIVE: CASE EVENT DATE: 2008
